FAERS Safety Report 14100622 (Version 2)
Quarter: 2017Q4

REPORT INFORMATION
  Report Type: Report from Study
  Country: MX (occurrence: MX)
  Receive Date: 20171017
  Receipt Date: 20171106
  Transmission Date: 20180321
  Serious: Yes (Other)
  Sender: FDA-Public Use
  Company Number: PHHY2017MX126694

PATIENT
  Sex: Female

DRUGS (4)
  1. LEVOTHYROXINE. [Concomitant]
     Active Substance: LEVOTHYROXINE
     Indication: PRODUCT USED FOR UNKNOWN INDICATION
     Route: 065
  2. DIAZEPAM. [Concomitant]
     Active Substance: DIAZEPAM
     Indication: PRODUCT USED FOR UNKNOWN INDICATION
     Route: 065
  3. EXELON PATCH [Suspect]
     Active Substance: RIVASTIGMINE
     Indication: DEMENTIA ALZHEIMER^S TYPE
     Dosage: 9.5 MG, PATCH 10 (CM2) (EVERY THIRD DAY)
     Route: 062
  4. ESCITALOPRAM [Suspect]
     Active Substance: ESCITALOPRAM OXALATE
     Indication: PRODUCT USED FOR UNKNOWN INDICATION
     Route: 065

REACTIONS (15)
  - Sleep disorder [Unknown]
  - Judgement impaired [Unknown]
  - Irritability [Unknown]
  - Anxiety [Unknown]
  - Hallucination [Unknown]
  - Inappropriate schedule of drug administration [Not Recovered/Not Resolved]
  - Burning sensation [Unknown]
  - Soliloquy [Unknown]
  - Impulsive behaviour [Unknown]
  - Delirium [Unknown]
  - Somnolence [Unknown]
  - Weight decreased [Unknown]
  - Drug prescribing error [Not Recovered/Not Resolved]
  - Abnormal behaviour [Unknown]
  - Aggression [Unknown]
